FAERS Safety Report 6674109-6 (Version None)
Quarter: 2010Q2

REPORT INFORMATION
  Report Type: 
  Country: None (occurrence: None)
  Receive Date: 20100409
  Receipt Date: 20100331
  Transmission Date: 20101027
  Serious: Yes (Hospitalization, Other)
  Sender: FDA-Public Use
  Company Number: US-RB-006568-10

PATIENT
  Age: 4 Year
  Sex: Male
  Weight: 18 kg

DRUGS (2)
  1. DELSYM ADULT COUGH SYRUP [Suspect]
     Dosage: TOOK A HALF OF A TEASPOON AT NIGHT FOR 4 NIGHTS PRIOR TO TAKING ABOUT HALF OF A BOTTLE AT ONCE.
     Route: 048
     Dates: start: 20100324
  2. BENADRYL [Concomitant]

REACTIONS (7)
  - ACCIDENTAL OVERDOSE [None]
  - ANAPHYLACTIC SHOCK [None]
  - INCOHERENT [None]
  - OCULAR HYPERAEMIA [None]
  - RASH [None]
  - SKIN DISCOMFORT [None]
  - VOMITING [None]
